FAERS Safety Report 12372016 (Version 3)
Quarter: 2016Q3

REPORT INFORMATION
  Report Type: Spontaneous
  Country: US (occurrence: US)
  Receive Date: 20160516
  Receipt Date: 20160915
  Transmission Date: 20161109
  Serious: Yes (Other)
  Sender: FDA-Public Use
  Company Number: US-009507513-1605USA007421

PATIENT
  Age: 25 Year
  Sex: Female
  Weight: 52.15 kg

DRUGS (2)
  1. NEXPLANON [Suspect]
     Active Substance: ETONOGESTREL
     Indication: CONTRACEPTION
     Dosage: 68 MG / 1 IMPLANT EVERY 3 YEARS
     Route: 059
     Dates: start: 20160219, end: 20160511
  2. MULTIVIT [Concomitant]
     Active Substance: VITAMINS
     Indication: ROUTINE HEALTH MAINTENANCE
     Dosage: 1 TABLET DAILY
     Route: 048
     Dates: start: 20160219, end: 20160319

REACTIONS (2)
  - Unintended pregnancy [Not Recovered/Not Resolved]
  - Pregnancy with implant contraceptive [Not Recovered/Not Resolved]

NARRATIVE: CASE EVENT DATE: 20160303
